FAERS Safety Report 4280747-0 (Version None)
Quarter: 2004Q1

REPORT INFORMATION
  Report Type: 
  Country: None (occurrence: None)
  Receive Date: 20040129
  Receipt Date: 20031229
  Transmission Date: 20041129
  Serious: No
  Sender: FDA-Public Use
  Company Number: US-BRISTOL-MYERS SQUIBB COMPANY-12466702

PATIENT
  Sex: Female

DRUGS (1)
  1. METAGLIP [Suspect]
     Dates: start: 20031229

REACTIONS (1)
  - HEADACHE [None]
